FAERS Safety Report 12967744 (Version 1)
Quarter: 2016Q4

REPORT INFORMATION
  Report Type: Other
  Country: US (occurrence: US)
  Receive Date: 20161123
  Receipt Date: 20161123
  Transmission Date: 20170207
  Serious: Yes (Death, Other)
  Sender: FDA-Public Use
  Company Number: US-LUPIN PHARMACEUTICALS INC.-2016-05123

PATIENT
  Sex: Male

DRUGS (1)
  1. SIMVASTATIN. [Suspect]
     Active Substance: SIMVASTATIN
     Indication: HYPERLIPIDAEMIA
     Route: 065

REACTIONS (9)
  - Impatience [Unknown]
  - Depressed mood [Unknown]
  - Anxiety [Unknown]
  - Completed suicide [Fatal]
  - Irritability [Unknown]
  - Dissociation [Unknown]
  - Social avoidant behaviour [Unknown]
  - Adjustment disorder [Unknown]
  - Decreased interest [Unknown]
